FAERS Safety Report 6998619-7 (Version None)
Quarter: 2010Q3

REPORT INFORMATION
  Report Type: 
  Country: None (occurrence: None)
  Receive Date: 20100920
  Receipt Date: 20100111
  Transmission Date: 20110219
  Serious: Yes (Other)
  Sender: FDA-Public Use
  Company Number: US-ASTRAZENECA-2009SE21963

PATIENT
  Age: 535 Month
  Sex: Female
  Weight: 57.2 kg

DRUGS (13)
  1. SEROQUEL [Suspect]
     Indication: BIPOLAR DISORDER
     Route: 048
     Dates: start: 20080101
  2. SEROQUEL [Suspect]
     Indication: DEPRESSION
     Route: 048
     Dates: start: 20080101
  3. SEROQUEL [Suspect]
     Route: 048
     Dates: start: 20080101, end: 20090101
  4. SEROQUEL [Suspect]
     Route: 048
     Dates: start: 20080101, end: 20090101
  5. ZYPREXA [Concomitant]
  6. SYMBYAX [Concomitant]
  7. PAXIL [Concomitant]
     Dates: start: 20050101
  8. PROZAC [Concomitant]
     Dates: start: 20061001, end: 20061201
  9. WELLBUTRIN [Concomitant]
  10. GABAPENTIN [Concomitant]
     Dates: start: 20070401
  11. DIAZEPAM [Concomitant]
     Dates: start: 20070601, end: 20071201
  12. BUSPIRONE HCL [Concomitant]
     Dates: start: 20080101
  13. CITALOPRAM HYDROBROMIDE [Concomitant]
     Dates: start: 20080101

REACTIONS (3)
  - ADVERSE DRUG REACTION [None]
  - SUICIDAL IDEATION [None]
  - TYPE 1 DIABETES MELLITUS [None]
